FAERS Safety Report 9284636 (Version 3)
Quarter: 2015Q4

REPORT INFORMATION
  Report Type: Spontaneous
  Country: US (occurrence: US)
  Receive Date: 20130513
  Receipt Date: 20151223
  Transmission Date: 20160305
  Serious: Yes (Other)
  Sender: FDA-Public Use
  Company Number: US-AMGEN-USASP2013032477

PATIENT
  Age: 71 Year
  Sex: Female
  Weight: 70.75 kg

DRUGS (4)
  1. PROLIA [Suspect]
     Active Substance: DENOSUMAB
     Indication: OSTEOPOROSIS
     Dosage: UNK
     Route: 065
  2. LYRICA [Suspect]
     Active Substance: PREGABALIN
     Indication: BACK PAIN
     Dosage: 125 MG, BID
     Route: 065
     Dates: start: 2010
  3. METOPROLOL TARTRATE. [Concomitant]
     Active Substance: METOPROLOL TARTRATE
     Indication: CARDIAC DISORDER
     Dosage: UNK UNK, BID
  4. SIMVASTATIN. [Concomitant]
     Active Substance: SIMVASTATIN
     Dosage: 40 MG, QD

REACTIONS (13)
  - Oropharyngeal pain [Unknown]
  - Breast cancer female [Not Recovered/Not Resolved]
  - Femur fracture [Unknown]
  - Knee arthroplasty [Unknown]
  - Malaise [Unknown]
  - Tooth disorder [Unknown]
  - Respiratory tract congestion [Not Recovered/Not Resolved]
  - Breast cancer recurrent [Not Recovered/Not Resolved]
  - Tooth loss [Unknown]
  - Sputum discoloured [Unknown]
  - Jaw disorder [Unknown]
  - Osteoporosis [Not Recovered/Not Resolved]
  - Productive cough [Not Recovered/Not Resolved]

NARRATIVE: CASE EVENT DATE: 2009
